FAERS Safety Report 5158146-9 (Version None)
Quarter: 2006Q4

REPORT INFORMATION
  Report Type: 
  Country: None (occurrence: None)
  Receive Date: 20061120
  Receipt Date: 20061120
  Transmission Date: 20070319
  Serious: Yes (Hospitalization, Other)
  Sender: FDA-Public Use
  Company Number: None

PATIENT
  Age: 25 Year
  Sex: Female

DRUGS (1)
  1. ABELCET [Suspect]
     Dosage: 400 MG DAILY IV
     Route: 042
     Dates: start: 20050524, end: 20050524

REACTIONS (2)
  - CHILLS [None]
  - PYREXIA [None]
